FAERS Safety Report 17355050 (Version 2)
Quarter: 2024Q4

REPORT INFORMATION
  Report Type: Spontaneous
  Country: US (occurrence: US)
  Receive Date: 20200131
  Receipt Date: 20241105
  Transmission Date: 20250115
  Serious: No
  Sender: PFIZER
  Company Number: US-PFIZER INC-2020040156

PATIENT
  Age: 6 Year
  Sex: Female
  Weight: 34.47 kg

DRUGS (2)
  1. HYDROCORTISONE [Suspect]
     Active Substance: HYDROCORTISONE
     Indication: Adrenal insufficiency
     Dosage: 5 MG, UNK (1 TABLET IN THE MORNING, 1/2 TABLET IN THE AFTERNOON, AND 1/4 TABLET AT BEDTIME)
  2. HYDROCORTISONE [Suspect]
     Active Substance: HYDROCORTISONE
     Dosage: 10 MG, AS NEEDED (10MG STRESS DOSE 3 TIMES A DAY AS NEEDED)

REACTIONS (1)
  - Weight increased [Unknown]

NARRATIVE: CASE EVENT DATE: 20190101
